FAERS Safety Report 10606488 (Version 3)
Quarter: 2015Q1

REPORT INFORMATION
  Report Type: Spontaneous
  Country: US (occurrence: None)
  Receive Date: 20141121
  Receipt Date: 20150309
  Transmission Date: 20150720
  Serious: Yes (Other)
  Sender: FDA-Public Use
  Company Number: CIO14076723

PATIENT
  Age: 58 Year
  Sex: Female
  Weight: 63.5 kg

DRUGS (7)
  1. CREST PRO-HEALTH SENSITIVE SHIELD SMOOTH MINT [Suspect]
     Active Substance: STANNOUS FLUORIDE
     Indication: SENSITIVITY OF TEETH
     Dosage: 1 APPLIC, A DIME SIZE ON THE TOOTHBRUSH, INTRAORAL
     Dates: start: 201310, end: 20140901
  2. ANTIEPILEPTICS [Concomitant]
     Active Substance: UNSPECIFIED INGREDIENT
  3. TOPAMAX [Concomitant]
     Active Substance: TOPIRAMATE
  4. ASPIRIN (ACETYLSALICYLIC ACID) [Concomitant]
     Active Substance: ASPIRIN
  5. GABAPENTIN. [Concomitant]
     Active Substance: GABAPENTIN
  6. BACTERIA NOS [Concomitant]
  7. LISTERINE (BAPTISIA TINCTORIA, BENZOIC ACID, BORIC ACID, CINEOLE, ETHANOL, MENTHOL, METHYL SALICYLATE, THYMOL) [Concomitant]

REACTIONS (13)
  - Dental caries [None]
  - Tooth disorder [None]
  - Tooth fracture [None]
  - Aphthous stomatitis [None]
  - Fungal infection [None]
  - Gastric disorder [None]
  - Gingival disorder [None]
  - Oral pain [None]
  - Tooth abscess [None]
  - Stomatitis [None]
  - Urticaria [None]
  - Gingival recession [None]
  - Oral mucosal exfoliation [None]
